FAERS Safety Report 24259422 (Version 1)
Quarter: 2024Q3

REPORT INFORMATION
  Report Type: Spontaneous
  Country: US (occurrence: None)
  Receive Date: 20240827
  Receipt Date: 20240827
  Transmission Date: 20241017
  Serious: Yes (Other)
  Sender: Public
  Company Number: None

PATIENT
  Age: 39 Year
  Sex: Female

DRUGS (1)
  1. COSENTYX [Suspect]
     Active Substance: SECUKINUMAB
     Dates: start: 20240531, end: 20240731

REACTIONS (3)
  - Diarrhoea [None]
  - Abdominal pain upper [None]
  - Therapy change [None]

NARRATIVE: CASE EVENT DATE: 20240826
